FAERS Safety Report 8760307 (Version 3)
Quarter: 2013Q1

REPORT INFORMATION
  Report Type: Spontaneous
  Country: US (occurrence: US)
  Receive Date: 20120830
  Receipt Date: 20130221
  Transmission Date: 20140127
  Serious: No
  Sender: FDA-Public Use
  Company Number: US-BIOGENIDEC-2012BI033681

PATIENT
  Age: 62 Year
  Sex: Female

DRUGS (1)
  1. AVONEX [Suspect]
     Indication: MULTIPLE SCLEROSIS
     Route: 030
     Dates: start: 20120720

REACTIONS (4)
  - Bronchitis [Recovered/Resolved]
  - Cough [Not Recovered/Not Resolved]
  - Allergic sinusitis [Not Recovered/Not Resolved]
  - General symptom [Recovered/Resolved]
